FAERS Safety Report 5513957-2 (Version None)
Quarter: 2007Q4

REPORT INFORMATION
  Report Type: 
  Country: None (occurrence: None)
  Receive Date: 20071113
  Receipt Date: 20071106
  Transmission Date: 20080405
  Serious: No
  Sender: FDA-Public Use
  Company Number: MY-ELI_LILLY_AND_COMPANY-MY200711001818

PATIENT

DRUGS (1)
  1. ZYPREXA [Suspect]
     Dosage: 10 MG, DAILY (1/D)
     Route: 048

REACTIONS (1)
  - WHITE BLOOD CELL COUNT DECREASED [None]
